FAERS Safety Report 23303375 (Version 1)
Quarter: 2023Q4

REPORT INFORMATION
  Report Type: Spontaneous
  Country: IN (occurrence: IN)
  Receive Date: 20231215
  Receipt Date: 20231215
  Transmission Date: 20240110
  Serious: Yes (Hospitalization, Other)
  Sender: FDA-Public Use
  Company Number: IN-MLMSERVICE-20231204-4701124-1

PATIENT

DRUGS (9)
  1. BUPRENORPHINE [Suspect]
     Active Substance: BUPRENORPHINE
     Indication: Procedural pain
     Dosage: EPIDURAL TOPUPS (POST-OPERATIVE)
     Route: 065
  2. BUPRENORPHINE [Suspect]
     Active Substance: BUPRENORPHINE
     Indication: Epidural anaesthesia
     Dosage: 60 MCG
     Route: 037
  3. BUPIVACAINE [Suspect]
     Active Substance: BUPIVACAINE
     Indication: Epidural anaesthesia
     Dosage: 4CC OF 0.25% BUPIVACAINE AFTER 3 HOURS OF STARTING THE PROCEDURE
     Route: 037
  4. BUPIVACAINE [Suspect]
     Active Substance: BUPIVACAINE
     Dosage: 3CC OF 0.5% HYPERBARIC BUPIVACAINE
     Route: 037
  5. BUPIVACAINE [Suspect]
     Active Substance: BUPIVACAINE
     Indication: Epidural anaesthesia
     Dosage: 4CC OF 0.25% BUPIVACAINE AFTER 3 HOURS OF STARTING THE PROCEDURE
     Route: 037
  6. BUPIVACAINE [Suspect]
     Active Substance: BUPIVACAINE
     Dosage: 3CC OF 0.5% HYPERBARIC BUPIVACAINE
     Route: 037
  7. LIDOCAINE [Suspect]
     Active Substance: LIDOCAINE
     Indication: Epidural anaesthesia
     Dosage: 3ML OF 2% LIGNOCAINE WITH ADRENALINE
     Route: 065
  8. EPINEPHRINE [Suspect]
     Active Substance: EPINEPHRINE
     Indication: Epidural anaesthesia
     Dosage: 3ML OF 2% LIGNOCAINE WITH ADRENALINE
     Route: 065
  9. TRAMADOL [Concomitant]
     Active Substance: TRAMADOL\TRAMADOL HYDROCHLORIDE
     Indication: Procedural pain
     Dosage: 8 HOURS
     Route: 065

REACTIONS (1)
  - Myoclonus [Recovered/Resolved]
